FAERS Safety Report 7580845-X (Version None)
Quarter: 2011Q2

REPORT INFORMATION
  Report Type: 
  Country: None (occurrence: None)
  Receive Date: 20110622
  Receipt Date: 20110607
  Transmission Date: 20111010
  Serious: Yes (Hospitalization)
  Sender: FDA-Public Use
  Company Number: 2011MA006902

PATIENT
  Age: 63 Year

DRUGS (3)
  1. SULFATRIM [Suspect]
     Indication: PNEUMOCYSTIS JIROVECI PNEUMONIA
  2. PREDNISONE [Concomitant]
  3. R-CHOP CHEMOTHERAPY [Concomitant]

REACTIONS (6)
  - DEVICE RELATED SEPSIS [None]
  - HEPATITIS CHOLESTATIC [None]
  - ORAL CANDIDIASIS [None]
  - HEPATOCELLULAR INJURY [None]
  - DRUG RASH WITH EOSINOPHILIA AND SYSTEMIC SYMPTOMS [None]
  - LIVER INJURY [None]
